FAERS Safety Report 20833413 (Version 1)
Quarter: 2022Q2

REPORT INFORMATION
  Report Type: Spontaneous
  Country: US (occurrence: US)
  Receive Date: 20220516
  Receipt Date: 20220516
  Transmission Date: 20220721
  Serious: No
  Sender: FDA-Public Use
  Company Number: US-PFIZER INC-202200693471

PATIENT
  Age: 70 Year
  Sex: Female
  Weight: 77.11 kg

DRUGS (2)
  1. PAXLOVID [Suspect]
     Active Substance: NIRMATRELVIR\RITONAVIR
     Indication: COVID-19 treatment
     Dosage: [PF-07321332 150 MG]/[RITONAVIR 100 MG]; 2X/DAY
     Dates: start: 20220506
  2. TRAZODONE [Concomitant]
     Active Substance: TRAZODONE HYDROCHLORIDE
     Indication: Sleep disorder
     Dosage: 50 MG
     Dates: start: 2005, end: 20220505

REACTIONS (9)
  - Urticaria [Unknown]
  - Pruritus [Unknown]
  - Rash [Unknown]
  - Depressed mood [Unknown]
  - Insomnia [Unknown]
  - Agitation [Unknown]
  - Anxiety [Unknown]
  - Dysgeusia [Unknown]
  - Mania [Unknown]

NARRATIVE: CASE EVENT DATE: 20220501
